FAERS Safety Report 4698956-5 (Version None)
Quarter: 2005Q2

REPORT INFORMATION
  Report Type: 
  Country: None (occurrence: None)
  Receive Date: 20050623
  Receipt Date: 20050623
  Transmission Date: 20051028
  Serious: No
  Sender: FDA-Public Use
  Company Number: None

PATIENT
  Age: 96 Year
  Sex: Female
  Weight: 50.2 kg

DRUGS (1)
  1. FENTANYL [Suspect]
     Dosage: USE/APPLY AS DIRECTED (TOPICAL)
     Route: 061

REACTIONS (2)
  - COMA [None]
  - THERAPEUTIC RESPONSE UNEXPECTED WITH DRUG SUBSTITUTION [None]
